FAERS Safety Report 25188386 (Version 1)
Quarter: 2025Q2

REPORT INFORMATION
  Report Type: Spontaneous
  Country: US (occurrence: US)
  Receive Date: 20250411
  Receipt Date: 20250411
  Transmission Date: 20250716
  Serious: Yes (Hospitalization, Other)
  Sender: AZURITY PHARMACEUTICALS
  Company Number: US-AZURITY PHARMACEUTICALS, INC.-AZR202503-000979

PATIENT
  Age: 59 Year
  Sex: Male

DRUGS (5)
  1. METHOTREXATE [Suspect]
     Active Substance: METHOTREXATE
     Indication: Myelodysplastic syndrome
     Route: 065
  2. AZACITIDINE [Suspect]
     Active Substance: AZACITIDINE
     Indication: Myelodysplastic syndrome
     Route: 065
  3. VENETOCLAX [Suspect]
     Active Substance: VENETOCLAX
     Indication: Myelodysplastic syndrome
     Route: 065
  4. ENASIDENIB [Suspect]
     Active Substance: ENASIDENIB
     Indication: Myelodysplastic syndrome
     Route: 065
  5. DEXAMETHASONE [Concomitant]
     Active Substance: DEXAMETHASONE
     Indication: Differentiation syndrome
     Route: 065

REACTIONS (7)
  - Cardiac tamponade [Recovered/Resolved]
  - Pneumopericardium [Unknown]
  - Pneumoperitoneum [Unknown]
  - Ascites [Recovered/Resolved]
  - Pericardial effusion [Recovered/Resolved]
  - Hypotension [Unknown]
  - Hepatotoxicity [Unknown]
